FAERS Safety Report 6940600-8 (Version None)
Quarter: 2010Q3

REPORT INFORMATION
  Report Type: 
  Country: None (occurrence: None)
  Receive Date: 20100825
  Receipt Date: 20100812
  Transmission Date: 20110219
  Serious: Yes (Other)
  Sender: FDA-Public Use
  Company Number: PHFR2010GB00750

PATIENT
  Age: 24 Year
  Sex: Male

DRUGS (1)
  1. GLEEVEC [Suspect]
     Indication: CHRONIC MYELOID LEUKAEMIA
     Dosage: 400 MG, QD
     Route: 048
     Dates: start: 20091101, end: 20100401

REACTIONS (4)
  - CHROMOSOME ANALYSIS ABNORMAL [None]
  - DRUG TOXICITY [None]
  - PLATELET COUNT DECREASED [None]
  - THROMBOCYTOPENIA [None]
